FAERS Safety Report 20633858 (Version 3)
Quarter: 2023Q2

REPORT INFORMATION
  Report Type: Report from Study
  Country: CN (occurrence: CN)
  Receive Date: 20220324
  Receipt Date: 20230609
  Transmission Date: 20230721
  Serious: Yes (Life-Threatening, Hospitalization)
  Sender: FDA-Public Use
  Company Number: CN-SUNOVION-2021DSP019322

PATIENT
  Age: 53 Year
  Sex: Female
  Weight: 66 kg

DRUGS (9)
  1. LURASIDONE HYDROCHLORIDE [Suspect]
     Active Substance: LURASIDONE HYDROCHLORIDE
     Indication: Bipolar I disorder
     Dosage: 20 MG, ONCE EVERY NIGHT
     Route: 048
     Dates: start: 20211115, end: 20211117
  2. LURASIDONE HYDROCHLORIDE [Suspect]
     Active Substance: LURASIDONE HYDROCHLORIDE
     Dosage: 40 MG, ONCE EVERY NIGHT
     Route: 048
     Dates: start: 20211118, end: 20211120
  3. LURASIDONE HYDROCHLORIDE [Suspect]
     Active Substance: LURASIDONE HYDROCHLORIDE
     Dosage: 60 MG, ONCE EVERY NIGHT
     Route: 048
     Dates: start: 20211121, end: 20211122
  4. LURASIDONE HYDROCHLORIDE [Suspect]
     Active Substance: LURASIDONE HYDROCHLORIDE
     Dosage: 60 MG, ONCE EVERY NIGHT
     Route: 048
     Dates: start: 20211123, end: 20211129
  5. OLANZAPINE [Concomitant]
     Active Substance: OLANZAPINE
     Indication: Bipolar I disorder
     Dosage: 5MG, ONCE EVERY NIGHT
     Route: 048
     Dates: start: 20210517, end: 20211111
  6. Shugan Jieyu [Concomitant]
     Indication: Bipolar I disorder
     Dosage: 0.72 G, BID
     Route: 048
     Dates: start: 20210916, end: 20211111
  7. ALPRAZOLAM [Concomitant]
     Active Substance: ALPRAZOLAM
     Indication: Bipolar I disorder
     Dosage: 0.4 MG, ONCE A NIGHT
     Route: 048
     Dates: start: 20211028, end: 20211111
  8. ROSUVASTATIN CALCIUM [Concomitant]
     Active Substance: ROSUVASTATIN CALCIUM
     Indication: Hypertriglyceridaemia
     Dosage: 10 MG, ONCE A NIGHT
     Route: 048
     Dates: start: 202110, end: 20211111
  9. ROSUVASTATIN [Concomitant]
     Active Substance: ROSUVASTATIN
     Indication: Hypertriglyceridaemia
     Dosage: 10 MG, ONCE A NIGHT
     Route: 048
     Dates: start: 20211015, end: 20211116

REACTIONS (2)
  - Suicide attempt [Recovered/Resolved]
  - Suicidal ideation [Recovered/Resolved]

NARRATIVE: CASE EVENT DATE: 20211129
